FAERS Safety Report 23821770 (Version 4)
Quarter: 2024Q3

REPORT INFORMATION
  Report Type: Spontaneous
  Country: US (occurrence: US)
  Receive Date: 20240506
  Receipt Date: 20240802
  Transmission Date: 20241016
  Serious: Yes (Hospitalization, Other)
  Sender: ELI LILLY AND CO
  Company Number: US-ELI_LILLY_AND_COMPANY-US202405000094

PATIENT
  Age: 57 Year
  Sex: Female

DRUGS (24)
  1. HUMALOG KWIKPEN [Suspect]
     Active Substance: INSULIN LISPRO
     Indication: Type 2 diabetes mellitus
     Dosage: 15 INTERNATIONAL UNIT, DAILY
     Route: 065
  2. HUMALOG KWIKPEN [Suspect]
     Active Substance: INSULIN LISPRO
     Indication: Type 2 diabetes mellitus
     Dosage: 15 INTERNATIONAL UNIT, DAILY
     Route: 065
  3. HUMALOG KWIKPEN [Suspect]
     Active Substance: INSULIN LISPRO
     Indication: Type 2 diabetes mellitus
     Dosage: 15 INTERNATIONAL UNIT, DAILY
     Route: 065
  4. HUMALOG KWIKPEN [Suspect]
     Active Substance: INSULIN LISPRO
     Dosage: 15 INTERNATIONAL UNIT, UNKNOWN
     Route: 065
  5. HUMALOG KWIKPEN [Suspect]
     Active Substance: INSULIN LISPRO
     Dosage: 15 INTERNATIONAL UNIT, UNKNOWN
     Route: 065
  6. HUMALOG KWIKPEN [Suspect]
     Active Substance: INSULIN LISPRO
     Dosage: 15 INTERNATIONAL UNIT, UNKNOWN
     Route: 065
  7. HUMALOG KWIKPEN [Suspect]
     Active Substance: INSULIN LISPRO
     Dosage: 15 INTERNATIONAL UNIT, UNKNOWN
     Route: 065
  8. HUMALOG KWIKPEN [Suspect]
     Active Substance: INSULIN LISPRO
     Dosage: 15 INTERNATIONAL UNIT, UNKNOWN
     Route: 065
  9. HUMALOG KWIKPEN [Suspect]
     Active Substance: INSULIN LISPRO
     Dosage: 15 INTERNATIONAL UNIT, UNKNOWN
     Route: 065
  10. HUMALOG KWIKPEN [Suspect]
     Active Substance: INSULIN LISPRO
     Dosage: 15 INTERNATIONAL UNIT, UNKNOWN
     Route: 065
  11. HUMALOG KWIKPEN [Suspect]
     Active Substance: INSULIN LISPRO
     Dosage: 15 INTERNATIONAL UNIT, UNKNOWN
     Route: 065
  12. HUMALOG KWIKPEN [Suspect]
     Active Substance: INSULIN LISPRO
     Dosage: 15 INTERNATIONAL UNIT, UNKNOWN
     Route: 065
  13. HUMALOG KWIKPEN [Suspect]
     Active Substance: INSULIN LISPRO
     Dosage: 15 INTERNATIONAL UNIT, DAILY
     Route: 065
  14. HUMALOG KWIKPEN [Suspect]
     Active Substance: INSULIN LISPRO
     Dosage: 15 INTERNATIONAL UNIT, DAILY
     Route: 065
  15. HUMALOG KWIKPEN [Suspect]
     Active Substance: INSULIN LISPRO
     Dosage: 15 INTERNATIONAL UNIT, DAILY
     Route: 065
  16. HUMALOG KWIKPEN [Suspect]
     Active Substance: INSULIN LISPRO
     Dosage: 15 INTERNATIONAL UNIT, DAILY
     Route: 065
  17. HUMALOG KWIKPEN [Suspect]
     Active Substance: INSULIN LISPRO
     Dosage: 15 INTERNATIONAL UNIT, DAILY
     Route: 065
  18. HUMALOG KWIKPEN [Suspect]
     Active Substance: INSULIN LISPRO
     Dosage: 15 INTERNATIONAL UNIT, DAILY
     Route: 065
  19. GLIPIZIDE [Concomitant]
     Active Substance: GLIPIZIDE
     Indication: Diabetes mellitus
  20. LANTUS [Concomitant]
     Active Substance: INSULIN GLARGINE
     Indication: Diabetes mellitus
  21. LISINOPRIL [Concomitant]
     Active Substance: LISINOPRIL
     Indication: Renal impairment
  22. TRESIBA [Concomitant]
     Active Substance: INSULIN DEGLUDEC
     Indication: Diabetes mellitus
  23. METFORMIN [Concomitant]
     Active Substance: METFORMIN HYDROCHLORIDE
     Indication: Diabetes mellitus
  24. GABAPENTIN [Concomitant]
     Active Substance: GABAPENTIN
     Indication: Diabetes mellitus
     Dosage: UNK UNK, UNKNOWN
     Route: 065

REACTIONS (17)
  - Blood glucose increased [Recovered/Resolved]
  - Fall [Unknown]
  - Malaise [Unknown]
  - Hyperhidrosis [Unknown]
  - Cerebrovascular accident [Unknown]
  - Fall [Unknown]
  - Vision blurred [Unknown]
  - Blepharospasm [Unknown]
  - Feeling abnormal [Unknown]
  - Neuropathy peripheral [Unknown]
  - Abdominal discomfort [Unknown]
  - Dizziness [Unknown]
  - Pancreatic disorder [Unknown]
  - Blood glucose increased [Recovered/Resolved]
  - Hypertension [Recovered/Resolved]
  - Product dose omission issue [Unknown]
  - Incorrect product administration duration [Unknown]

NARRATIVE: CASE EVENT DATE: 20231201
